FAERS Safety Report 20328084 (Version 4)
Quarter: 2025Q2

REPORT INFORMATION
  Report Type: Spontaneous
  Country: IE (occurrence: IE)
  Receive Date: 20220112
  Receipt Date: 20250409
  Transmission Date: 20250716
  Serious: Yes (Disabling, Other)
  Sender: MYLAN
  Company Number: IE-ROCHE-2980253

PATIENT
  Age: 60 Year
  Sex: Male

DRUGS (20)
  1. METHOTREXATE [Suspect]
     Active Substance: METHOTREXATE
     Indication: Rheumatoid arthritis
  2. METHOTREXATE [Suspect]
     Active Substance: METHOTREXATE
     Route: 065
  3. METHOTREXATE [Suspect]
     Active Substance: METHOTREXATE
     Route: 065
  4. METHOTREXATE [Suspect]
     Active Substance: METHOTREXATE
  5. RITUXIMAB [Suspect]
     Active Substance: RITUXIMAB
     Indication: Rheumatoid arthritis
  6. RITUXIMAB [Suspect]
     Active Substance: RITUXIMAB
     Route: 065
  7. RITUXIMAB [Suspect]
     Active Substance: RITUXIMAB
     Route: 065
  8. RITUXIMAB [Suspect]
     Active Substance: RITUXIMAB
  9. METHYLPREDNISOLONE [Concomitant]
     Active Substance: METHYLPREDNISOLONE
     Indication: Immune reconstitution inflammatory syndrome
  10. METHYLPREDNISOLONE [Concomitant]
     Active Substance: METHYLPREDNISOLONE
     Route: 065
  11. METHYLPREDNISOLONE [Concomitant]
     Active Substance: METHYLPREDNISOLONE
     Route: 065
  12. METHYLPREDNISOLONE [Concomitant]
     Active Substance: METHYLPREDNISOLONE
  13. MEFLOQUINE [Concomitant]
     Active Substance: MEFLOQUINE
  14. MEFLOQUINE [Concomitant]
     Active Substance: MEFLOQUINE
     Route: 065
  15. MEFLOQUINE [Concomitant]
     Active Substance: MEFLOQUINE
     Route: 065
  16. MEFLOQUINE [Concomitant]
     Active Substance: MEFLOQUINE
  17. CYTARABINE [Concomitant]
     Active Substance: CYTARABINE
  18. CYTARABINE [Concomitant]
     Active Substance: CYTARABINE
     Route: 065
  19. CYTARABINE [Concomitant]
     Active Substance: CYTARABINE
     Route: 065
  20. CYTARABINE [Concomitant]
     Active Substance: CYTARABINE

REACTIONS (2)
  - Immune reconstitution inflammatory syndrome [Unknown]
  - Progressive multifocal leukoencephalopathy [Unknown]
